FAERS Safety Report 7148030-3 (Version None)
Quarter: 2010Q4

REPORT INFORMATION
  Report Type: 
  Country: None (occurrence: None)
  Receive Date: 20101209
  Receipt Date: 20101201
  Transmission Date: 20110411
  Serious: Yes (Other)
  Sender: FDA-Public Use
  Company Number: PL-PFIZER INC-2010162600

PATIENT
  Age: 27 Year
  Sex: Female

DRUGS (3)
  1. XALATAN [Suspect]
     Indication: GLAUCOMA
     Dosage: 1 UG, 1X/DAY
     Route: 047
  2. ALPHAGAN [Concomitant]
     Dosage: 2X IN BOTH EYES
  3. OFTENSIN [Concomitant]
     Dosage: 0.5% 2X BOTH EYES

REACTIONS (4)
  - BLOOD PRESSURE DECREASED [None]
  - DYSPNOEA [None]
  - FEELING ABNORMAL [None]
  - HYPERTENSION [None]
